FAERS Safety Report 8507768-3 (Version None)
Quarter: 2012Q3

REPORT INFORMATION
  Report Type: 
  Country: None (occurrence: None)
  Receive Date: 20120709
  Receipt Date: 20120709
  Transmission Date: 20120928
  Serious: Yes (Other)
  Sender: FDA-Public Use
  Company Number: None

PATIENT
  Sex: Male

DRUGS (3)
  1. ZOLOFT [Suspect]
  2. SERTRALINE HYDROCHLORIDE [Suspect]
     Indication: OBSESSIVE-COMPULSIVE DISORDER
     Dosage: 100MG #2 TABS QD PO
     Route: 048
     Dates: start: 20090601, end: 20120706
  3. SERTRALINE HYDROCHLORIDE [Suspect]
     Indication: DEPRESSION
     Dosage: 100MG #2 TABS QD PO
     Route: 048
     Dates: start: 20090601, end: 20120706

REACTIONS (4)
  - OBSESSIVE-COMPULSIVE DISORDER [None]
  - DISEASE RECURRENCE [None]
  - DEPRESSION [None]
  - PRODUCT SUBSTITUTION ISSUE [None]
